FAERS Safety Report 25731154 (Version 2)
Quarter: 2025Q4

REPORT INFORMATION
  Report Type: Spontaneous
  Country: JP (occurrence: JP)
  Receive Date: 20250827
  Receipt Date: 20251231
  Transmission Date: 20260119
  Serious: Yes (Other)
  Sender: MERCK SHARP & DOHME LLC
  Company Number: JP-009507513-2322732

PATIENT
  Age: 74 Year
  Sex: Male

DRUGS (1)
  1. PEMBROLIZUMAB [Suspect]
     Active Substance: PEMBROLIZUMAB
     Indication: Prostate cancer
     Dosage: THE PARA-AORTIC METASTASES TO LYMPH NODES OF THE TUMOUR APPEARED AND EXACERBATED, SO PEMBROLIZUMA...
     Route: 041

REACTIONS (5)
  - Retinal vasculitis [Unknown]
  - Glaucoma [Unknown]
  - Uveitis [Unknown]
  - Retinal artery occlusion [Unknown]
  - Aortic aneurysm [Recovered/Resolved]
